FAERS Safety Report 5069365-4 (Version None)
Quarter: 2006Q3

REPORT INFORMATION
  Report Type: 
  Country: None (occurrence: None)
  Receive Date: 20060714
  Receipt Date: 20060328
  Transmission Date: 20061208
  Serious: No
  Sender: FDA-Public Use
  Company Number: 2006SP001424

PATIENT
  Age: 59 Year
  Sex: Female

DRUGS (8)
  1. LUNESTA [Suspect]
     Indication: INSOMNIA
     Dosage: 3 MG;1X;ORAL
     Route: 048
     Dates: start: 20060318, end: 20060318
  2. PREVACID [Concomitant]
  3. WATER PILLS [Concomitant]
  4. WARFARIN SODIUM [Concomitant]
  5. PROVERA [Concomitant]
  6. ESTROGENS [Concomitant]
  7. PROSOM [Concomitant]
  8. NAPROSYN [Concomitant]

REACTIONS (7)
  - DIZZINESS [None]
  - DRUG INEFFECTIVE [None]
  - DYSGEUSIA [None]
  - EYE IRRITATION [None]
  - INSOMNIA [None]
  - NAUSEA [None]
  - NERVOUSNESS [None]
